FAERS Safety Report 12930888 (Version 1)
Quarter: 2016Q4

REPORT INFORMATION
  Report Type: Spontaneous
  Country: US (occurrence: US)
  Receive Date: 20161110
  Receipt Date: 20161110
  Transmission Date: 20170207
  Serious: Yes (Death, Hospitalization, Other)
  Sender: FDA-Public Use
  Company Number: US-TEVA-711525USA

PATIENT
  Age: 74 Year
  Sex: Female
  Weight: 59.47 kg

DRUGS (1)
  1. FENTANYL. [Suspect]
     Active Substance: FENTANYL
     Indication: CANCER PAIN
     Dosage: 50MCG 5
     Route: 062
     Dates: start: 201610, end: 20161017

REACTIONS (3)
  - Carcinoid tumour pulmonary [Fatal]
  - Bone cancer [Fatal]
  - Hospitalisation [Unknown]

NARRATIVE: CASE EVENT DATE: 20161010
